FAERS Safety Report 21156788 (Version 1)
Quarter: 2022Q3

REPORT INFORMATION
  Report Type: Spontaneous
  Country: US (occurrence: None)
  Receive Date: 20220801
  Receipt Date: 20220801
  Transmission Date: 20221026
  Serious: No
  Sender: FDA-Public Use
  Company Number: None

PATIENT
  Sex: Female

DRUGS (2)
  1. TETRABENAZINE [Suspect]
     Active Substance: TETRABENAZINE
     Indication: Parkinsonism
     Dosage: TAKE ONE 25MG TABLET AT BEDTIME
     Route: 048
  2. TETRABENAZINE [Suspect]
     Active Substance: TETRABENAZINE
     Indication: Parkinsonism
     Dosage: TAKE ONE 12.5MG TABLET IN THE MORNING?
     Route: 048

REACTIONS (2)
  - Psychotic disorder [None]
  - Urinary tract infection [None]
